FAERS Safety Report 13507204 (Version 1)
Quarter: 2017Q2

REPORT INFORMATION
  Report Type: Spontaneous
  Country: US (occurrence: US)
  Receive Date: 20170503
  Receipt Date: 20170503
  Transmission Date: 20170830
  Serious: No
  Sender: FDA-Public Use
  Company Number: US-TEVA-693315USA

PATIENT
  Sex: Male

DRUGS (22)
  1. NICOTINE POLACRILEX [Suspect]
     Active Substance: NICOTINE
     Route: 065
  2. IPRATROPIUM [Concomitant]
     Active Substance: IPRATROPIUM
     Dosage: 0.5-2.5 (3) MG/3ML SOLUTIONS 3 ML FOUR TIMES A DAY
  3. LOSARTAN POTASSIUM. [Concomitant]
     Active Substance: LOSARTAN POTASSIUM
     Dosage: 100 MILLIGRAM DAILY;
  4. ERGOCALCIFEROL. [Concomitant]
     Active Substance: ERGOCALCIFEROL
     Dosage: 7142.8571 IU (INTERNATIONAL UNIT) DAILY;
  5. WELLBUTRIN [Concomitant]
     Active Substance: BUPROPION HYDROCHLORIDE
     Dosage: 300 MILLIGRAM DAILY;
  6. ADVAIR HFA [Concomitant]
     Active Substance: FLUTICASONE PROPIONATE\SALMETEROL XINAFOATE
     Dosage: 1 PUFF TWICE A DAY
  7. ATORVASTATIN CALCIUM. [Concomitant]
     Active Substance: ATORVASTATIN CALCIUM
     Dosage: 40 MILLIGRAM DAILY;
  8. NORVASC [Suspect]
     Active Substance: AMLODIPINE BESYLATE
     Dosage: 5 MILLIGRAM DAILY;
     Route: 065
  9. ASPIRIN. [Concomitant]
     Active Substance: ASPIRIN
     Dosage: 81 MILLIGRAM DAILY;
  10. LYRICA [Suspect]
     Active Substance: PREGABALIN
     Indication: DIABETIC NEUROPATHY
     Dosage: 200 MILLIGRAM DAILY;
     Route: 048
  11. BUMETANIDE. [Concomitant]
     Active Substance: BUMETANIDE
     Dosage: 4 MILLIGRAM DAILY;
  12. LINZESS [Concomitant]
     Active Substance: LINACLOTIDE
     Dosage: 290 MICROGRAM DAILY;
  13. HYDROCODONE W/ACETAMINOPHEN [Concomitant]
     Active Substance: ACETAMINOPHEN\HYDROCODONE BITARTRATE
     Indication: DIABETIC NEUROPATHY
     Dosage: 10-325MG/1 TABLET AS NEEDED EVERY 6 HOURS/NOT TAKING/PRN
     Route: 048
  14. VIAGRA [Suspect]
     Active Substance: SILDENAFIL CITRATE
     Indication: ERECTILE DYSFUNCTION
     Dosage: 1 TABLET AS NEEDED, ONCE A DAY
     Route: 048
  15. COLCHICINE. [Concomitant]
     Active Substance: COLCHICINE
     Dosage: 1.2 MILLIGRAM DAILY;
  16. ULORIC [Concomitant]
     Active Substance: FEBUXOSTAT
     Dosage: 40 MILLIGRAM DAILY;
  17. OMEPRAZOLE. [Concomitant]
     Active Substance: OMEPRAZOLE
     Dosage: 80 MILLIGRAM DAILY;
  18. XANAX [Suspect]
     Active Substance: ALPRAZOLAM
     Dosage: 1 TABLET 3 TIMES A DAY, NOTES: AS NEEDED
     Route: 065
  19. SPIRIVA [Suspect]
     Active Substance: TIOTROPIUM BROMIDE MONOHYDRATE
     Dosage: 5 MICROGRAM DAILY; 2.5 MCG/ACT AEROSOL SOLUTION 1 PUFF TWICE A DAY
     Route: 065
  20. ZOLOFT [Suspect]
     Active Substance: SERTRALINE HYDROCHLORIDE
     Dosage: 50 MILLIGRAM DAILY;
     Route: 065
  21. COLCHICINE. [Concomitant]
     Active Substance: COLCHICINE
     Dosage: .6 MILLIGRAM DAILY;
  22. PROAIR FHA [Concomitant]
     Dosage: 2 PUFFS AS NEEDED EVERY 4 HOURS

REACTIONS (2)
  - Fluid retention [Unknown]
  - Oedema [Unknown]
